FAERS Safety Report 5419045-8 (Version None)
Quarter: 2007Q3

REPORT INFORMATION
  Report Type: 
  Country: None (occurrence: None)
  Receive Date: 20070820
  Receipt Date: 20070809
  Transmission Date: 20080115
  Serious: Yes (Hospitalization)
  Sender: FDA-Public Use
  Company Number: PHHO2007US10176

PATIENT
  Age: 50 Year
  Sex: Female
  Weight: 100 kg

DRUGS (10)
  1. CSTI571B [Suspect]
     Indication: BREAST CANCER METASTATIC
     Dosage: 400 MG, BID
     Route: 048
     Dates: start: 20070508
  2. TAXOL [Suspect]
     Indication: BREAST CANCER METASTATIC
     Dosage: 100MG/M2 Q3 OF 4 WEEKS
     Route: 042
     Dates: start: 20070510
  3. PROTONIX [Concomitant]
  4. LEXAPRO [Concomitant]
  5. SYNTHROID [Concomitant]
  6. ZYRTEC [Concomitant]
  7. AMBIEN [Concomitant]
  8. FENTANYL [Concomitant]
  9. OXYCODONE HCL [Concomitant]
  10. FLEET [Concomitant]

REACTIONS (18)
  - ALOPECIA [None]
  - BLOOD CULTURE POSITIVE [None]
  - BONE LESION [None]
  - BREATH SOUNDS ABNORMAL [None]
  - CANDIDIASIS [None]
  - CARDIAC MURMUR [None]
  - CATHETER RELATED INFECTION [None]
  - COLLAPSE OF LUNG [None]
  - ENTEROCOCCAL INFECTION [None]
  - FEBRILE NEUTROPENIA [None]
  - LYMPHADENOPATHY [None]
  - LYMPHADENOPATHY MEDIASTINAL [None]
  - MALIGNANT NEOPLASM PROGRESSION [None]
  - METASTASES TO LIVER [None]
  - METASTATIC NEOPLASM [None]
  - PULMONARY ARTERY DILATATION [None]
  - PYREXIA [None]
  - URINARY TRACT INFECTION [None]
